FAERS Safety Report 21771369 (Version 1)
Quarter: 2022Q4

REPORT INFORMATION
  Report Type: Spontaneous
  Country: FR (occurrence: FR)
  Receive Date: 20221223
  Receipt Date: 20221223
  Transmission Date: 20230112
  Serious: Yes (Other)
  Sender: FDA-Public Use
  Company Number: None

PATIENT
  Age: 12 Year
  Sex: Male

DRUGS (1)
  1. LOVENOX [Suspect]
     Active Substance: ENOXAPARIN SODIUM
     Indication: Foot fracture
     Dosage: 0.4 ML
     Route: 058
     Dates: start: 20221128

REACTIONS (1)
  - Target skin lesion [Not Recovered/Not Resolved]

NARRATIVE: CASE EVENT DATE: 20221202
